FAERS Safety Report 9986237 (Version 8)
Quarter: 2014Q2

REPORT INFORMATION
  Report Type: Spontaneous
  Country: IT (occurrence: IT)
  Receive Date: 20140307
  Receipt Date: 20140512
  Transmission Date: 20141212
  Serious: Yes (Hospitalization)
  Sender: FDA-Public Use
  Company Number: IT-PFIZER INC-2014061205

PATIENT
  Age: 85 Year
  Sex: Male

DRUGS (5)
  1. ALPRAZOLAM [Suspect]
     Indication: SEDATION
     Dosage: 40 GTT, TOTAL
     Route: 048
     Dates: start: 20140205
  2. GABAPENTIN [Suspect]
     Indication: SEDATION
     Dosage: 200 MG, TOTAL
     Route: 048
     Dates: start: 20140205, end: 20140205
  3. SEROQUEL [Suspect]
     Indication: SEDATION
     Dosage: 25 MG, DAILY
     Route: 048
     Dates: start: 20140204
  4. LOBIVON [Concomitant]
     Dosage: 5 MG, UNK
  5. MADOPAR [Concomitant]
     Indication: PARKINSONISM
     Dosage: BENSERAZIDE HYDROCHLORIDE 25 MG/ LEVODOPA 100 MG, UNK

REACTIONS (3)
  - Off label use [Recovering/Resolving]
  - Erythema [Recovering/Resolving]
  - Sopor [Recovering/Resolving]
